FAERS Safety Report 21701917 (Version 1)
Quarter: 2022Q4

REPORT INFORMATION
  Report Type: Spontaneous
  Country: US (occurrence: US)
  Receive Date: 20221208
  Receipt Date: 20221208
  Transmission Date: 20230112
  Serious: Yes (Other)
  Sender: FDA-Public Use
  Company Number: US-PFIZER INC-PV202200118073

PATIENT
  Age: 55 Year
  Sex: Male

DRUGS (1)
  1. PRISTIQ EXTENDED-RELEASE [Suspect]
     Active Substance: DESVENLAFAXINE SUCCINATE
     Indication: Mental disorder
     Dosage: 50 MG, 4X/DAY (50MG 1QID)

REACTIONS (3)
  - Drug dependence [Unknown]
  - Off label use [Unknown]
  - Depression [Not Recovered/Not Resolved]
